FAERS Safety Report 9287051 (Version 2)
Quarter: 2013Q4

REPORT INFORMATION
  Report Type: Spontaneous
  Country: US (occurrence: US)
  Receive Date: 20130513
  Receipt Date: 20131030
  Transmission Date: 20140711
  Serious: Yes (Hospitalization)
  Sender: FDA-Public Use
  Company Number: US-B.I. PHARMACEUTICALS,INC./RIDGEFIELD-2013-BI-13178BP

PATIENT
  Age: 81 Year
  Sex: Male
  Weight: 91.85 kg

DRUGS (11)
  1. PRADAXA [Suspect]
     Indication: ATRIAL FIBRILLATION
     Dosage: 300 MG
     Route: 048
     Dates: end: 20130115
  2. NORVASC [Concomitant]
     Dosage: 5 MG
     Route: 048
  3. ASPIRIN [Concomitant]
     Indication: CORONARY ARTERY DISEASE
     Dosage: 81 MG
     Route: 048
     Dates: end: 2013
  4. LIPITOR [Concomitant]
     Indication: HYPERLIPIDAEMIA
     Dosage: 20 MG
     Dates: start: 2005
  5. VITAMIN D3 [Concomitant]
  6. PLAVIX [Concomitant]
     Indication: CORONARY ARTERY DISEASE
     Dosage: 75 MG
     Route: 048
     Dates: start: 2012, end: 2013
  7. LASIX [Concomitant]
     Dosage: 20 MG
     Route: 048
     Dates: start: 2006
  8. TOPROL XL [Concomitant]
     Dosage: 50 MG
     Route: 048
     Dates: start: 2007
  9. ACIPHEX [Concomitant]
     Dosage: 20 MG
     Route: 048
     Dates: start: 2006, end: 2013
  10. NITROGLYCERIN [Concomitant]
  11. IMDUR [Concomitant]
     Dosage: 30 MG
     Route: 048
     Dates: start: 2008, end: 2013

REACTIONS (2)
  - Gastrointestinal haemorrhage [Unknown]
  - Anaemia [Unknown]
